FAERS Safety Report 8488919-6 (Version None)
Quarter: 2012Q3

REPORT INFORMATION
  Report Type: 
  Country: None (occurrence: None)
  Receive Date: 20120705
  Receipt Date: 20120627
  Transmission Date: 20120928
  Serious: Yes (Hospitalization, Disabling)
  Sender: FDA-Public Use
  Company Number: US-B.I. PHARMACEUTICALS,INC./RIDGEFIELD-2012-BP-12796BP

PATIENT
  Sex: Female
  Weight: 95.25 kg

DRUGS (5)
  1. PRADAXA [Suspect]
     Indication: PULMONARY EMBOLISM
  2. EFFEXOR [Concomitant]
     Indication: DEPRESSION
     Dosage: 150 MG
  3. WELLBUTRIN [Concomitant]
     Indication: DEPRESSION
     Dosage: 150 MG
  4. CA AND VIT D [Concomitant]
  5. PRADAXA [Suspect]
     Indication: DEEP VEIN THROMBOSIS
     Dosage: 300 MG
     Route: 048
     Dates: start: 20120330

REACTIONS (2)
  - PERIPHERAL ARTERIAL OCCLUSIVE DISEASE [None]
  - ARTERIAL HAEMORRHAGE [None]
